FAERS Safety Report 11505983 (Version 3)
Quarter: 2016Q1

REPORT INFORMATION
  Report Type: Report from Study
  Country: FR (occurrence: FR)
  Receive Date: 20150915
  Receipt Date: 20160126
  Transmission Date: 20160525
  Serious: Yes (Hospitalization)
  Sender: FDA-Public Use
  Company Number: FR-AMGEN-FRACT2015093930

PATIENT
  Age: 69 Year
  Sex: Male

DRUGS (30)
  1. CORTANCYL [Concomitant]
     Active Substance: PREDNISONE
     Dosage: 8 MG, DAILY
     Route: 048
     Dates: start: 20121010, end: 20121109
  2. CORTANCYL [Concomitant]
     Active Substance: PREDNISONE
     Dosage: 2 MG, 1X/DAY
     Route: 048
     Dates: start: 20140409, end: 20140924
  3. TOPALGIC                           /00599202/ [Concomitant]
     Active Substance: TRAMADOL
     Dosage: 150 MG, 2X/DAY
     Route: 048
     Dates: start: 20120705, end: 201301
  4. TOPALGIC                           /00599202/ [Concomitant]
     Active Substance: TRAMADOL
     Dosage: 100 MG, 2X/DAY
     Route: 048
     Dates: start: 20130214
  5. LASILIX                            /00032601/ [Concomitant]
     Active Substance: FUROSEMIDE
     Indication: OEDEMA PERIPHERAL
     Dosage: 40 MG, DAILY
     Route: 048
     Dates: start: 20120705, end: 201301
  6. CORTANCYL [Concomitant]
     Active Substance: PREDNISONE
     Dosage: 15 MG, DAILY
     Route: 048
     Dates: start: 20120705, end: 20120805
  7. CORTANCYL [Concomitant]
     Active Substance: PREDNISONE
     Dosage: 13 MG, DAILY
     Route: 048
     Dates: start: 20120813, end: 20120819
  8. TOPALGIC                           /00599202/ [Concomitant]
     Active Substance: TRAMADOL
     Indication: RHEUMATOID ARTHRITIS
     Dosage: 100 MG, 2X/DAY
     Route: 048
     Dates: start: 20120406, end: 20120611
  9. ATARAX [Concomitant]
     Active Substance: HYDROXYZINE\HYDROXYZINE HYDROCHLORIDE
     Dosage: 50 MG, QD (DAILY)
     Route: 048
     Dates: start: 20120625
  10. LASILIX                            /00032601/ [Concomitant]
     Active Substance: FUROSEMIDE
     Dosage: 20 MG, DAILY
     Route: 048
     Dates: start: 20150601
  11. CORTANCYL [Concomitant]
     Active Substance: PREDNISONE
     Dosage: 5 MG, DAILY
     Route: 048
     Dates: start: 20130107, end: 201308
  12. CORTANCYL [Concomitant]
     Active Substance: PREDNISONE
     Dosage: 4 MG, DAILY
     Route: 048
     Dates: start: 201308, end: 20131024
  13. CORTANCYL [Concomitant]
     Active Substance: PREDNISONE
     Dosage: 3 MG, DAILY
     Route: 048
     Dates: start: 20131024
  14. CORTANCYL [Concomitant]
     Active Substance: PREDNISONE
     Dosage: 12 MG, DAILY
     Route: 048
     Dates: start: 20120820, end: 20120826
  15. CORTANCYL [Concomitant]
     Active Substance: PREDNISONE
     Dosage: 6 MG, DAILY
     Route: 048
     Dates: start: 20121207, end: 20130106
  16. FIXICAL [Concomitant]
     Active Substance: CALCIUM CARBONATE
     Indication: OEDEMA PERIPHERAL
     Dosage: 500 MG, DAILY
     Route: 048
     Dates: start: 20120406, end: 20120705
  17. LANZOR [Concomitant]
     Active Substance: LANSOPRAZOLE
     Dosage: 30 MG, DAILY
     Route: 048
     Dates: start: 20120518, end: 20120611
  18. OGAST [Concomitant]
     Active Substance: LANSOPRAZOLE
     Dosage: 15 MG, DAILY
     Route: 048
     Dates: start: 201204, end: 201206
  19. ZYRTEC [Concomitant]
     Active Substance: CETIRIZINE HYDROCHLORIDE
     Dosage: 1 UNIT NOT REPORTED (1 UNIT NOT REPORTED,DAILY), DAILY
     Route: 048
     Dates: start: 20120518
  20. CORTANCYL [Concomitant]
     Active Substance: PREDNISONE
     Dosage: 10 MG, DAILY
     Route: 048
     Dates: start: 20120903, end: 20120909
  21. CORTANCYL [Concomitant]
     Active Substance: PREDNISONE
     Dosage: 7 MG, DAILY
     Route: 048
     Dates: start: 20121110, end: 20121206
  22. CORTANCYL [Concomitant]
     Active Substance: PREDNISONE
     Indication: RHEUMATOID ARTHRITIS
     Dosage: 20 MG, DAILY
     Route: 048
     Dates: start: 20120326, end: 20120611
  23. CORTANCYL [Concomitant]
     Active Substance: PREDNISONE
     Dosage: 11 MG, DAILY
     Route: 048
     Dates: start: 20120827, end: 20120902
  24. CORTANCYL [Concomitant]
     Active Substance: PREDNISONE
     Dosage: 3 MG, DAILY
     Route: 048
     Dates: start: 20131024, end: 20140409
  25. LASILIX                            /00032601/ [Concomitant]
     Active Substance: FUROSEMIDE
     Dosage: 20 MG, DAILY
     Route: 048
     Dates: start: 201301
  26. ETANERCEPT [Suspect]
     Active Substance: ETANERCEPT
     Indication: RHEUMATOID ARTHRITIS
     Dosage: 50 MG, QWK
     Route: 058
     Dates: end: 20150629
  27. CORTANCYL [Concomitant]
     Active Substance: PREDNISONE
     Dosage: 14 MG, DAILY
     Route: 048
     Dates: start: 20120806, end: 20120812
  28. CORTANCYL [Concomitant]
     Active Substance: PREDNISONE
     Dosage: 9 MG, DAILY
     Route: 048
     Dates: start: 20120910, end: 20121009
  29. LASILIX                            /00032601/ [Concomitant]
     Active Substance: FUROSEMIDE
     Indication: RHEUMATOID ARTHRITIS
     Dosage: 40 MG, DAILY
     Route: 048
     Dates: start: 20120406, end: 20120611
  30. ZENTEL [Concomitant]
     Active Substance: ALBENDAZOLE
     Dosage: 400 MG, UNK
     Route: 048
     Dates: start: 20150324, end: 20150422

REACTIONS (1)
  - Morphoea [Not Recovered/Not Resolved]

NARRATIVE: CASE EVENT DATE: 20150706
